FAERS Safety Report 13919977 (Version 1)
Quarter: 2017Q3

REPORT INFORMATION
  Report Type: Spontaneous
  Country: US (occurrence: US)
  Receive Date: 20170830
  Receipt Date: 20170830
  Transmission Date: 20171127
  Serious: No
  Sender: FDA-Public Use
  Company Number: US-PFIZER INC-2017366791

PATIENT
  Sex: Female

DRUGS (1)
  1. LEVOXYL [Suspect]
     Active Substance: LEVOTHYROXINE SODIUM
     Dosage: 75 UG, UNK (1 X 50 UG AND SPLITTING 1 50 UG TO GET 25 UG HALF, TO EQUAL A 75 UG DOSE)

REACTIONS (3)
  - Wrong technique in product usage process [Unknown]
  - Feeling abnormal [Unknown]
  - Blood pressure increased [Unknown]
